FAERS Safety Report 25256498 (Version 2)
Quarter: 2025Q2

REPORT INFORMATION
  Report Type: Spontaneous
  Country: US (occurrence: US)
  Receive Date: 20250430
  Receipt Date: 20250520
  Transmission Date: 20250716
  Serious: No
  Sender: TEVA
  Company Number: US-TEVA-VS-3324973

PATIENT
  Sex: Female

DRUGS (1)
  1. DEXTROAMPHETAMINE SACCHARATE, AMPHETAMINE ASPARTATE, DEXTROAMPHETAMINE [Suspect]
     Active Substance: AMPHETAMINE ASPARTATE\AMPHETAMINE SULFATE\DEXTROAMPHETAMINE SACCHARATE\DEXTROAMPHETAMINE SULFATE
     Indication: Attention deficit hyperactivity disorder
     Route: 065

REACTIONS (9)
  - Anxiety [Unknown]
  - Disturbance in attention [Unknown]
  - Therapeutic response shortened [Unknown]
  - Heart rate increased [Unknown]
  - Feeling abnormal [Unknown]
  - Brain fog [Unknown]
  - Apathy [Unknown]
  - Fatigue [Unknown]
  - Drug ineffective [Unknown]
